FAERS Safety Report 18340491 (Version 1)
Quarter: 2020Q4

REPORT INFORMATION
  Report Type: Spontaneous
  Country: JP (occurrence: JP)
  Receive Date: 20201002
  Receipt Date: 20201002
  Transmission Date: 20210113
  Serious: Yes (Death, Other)
  Sender: FDA-Public Use
  Company Number: JP-009507513-1908JPN013032

PATIENT
  Age: 7 Decade
  Sex: Female

DRUGS (2)
  1. SIVEXTRO [Suspect]
     Active Substance: TEDIZOLID PHOSPHATE
     Indication: SKIN INFECTION
     Dosage: 200 MILLIGRAM, QD
     Route: 048
     Dates: start: 202001, end: 202009
  2. SIVEXTRO [Suspect]
     Active Substance: TEDIZOLID PHOSPHATE
     Indication: STAPHYLOCOCCAL INFECTION
     Dosage: 200 MILLIGRAM, QD
     Route: 041
     Dates: start: 201908, end: 201908

REACTIONS (2)
  - Death [Fatal]
  - Phlebitis [Recovered/Resolved]

NARRATIVE: CASE EVENT DATE: 201908
